FAERS Safety Report 6385725-3 (Version None)
Quarter: 2009Q4

REPORT INFORMATION
  Report Type: 
  Country: None (occurrence: None)
  Receive Date: 20091002
  Receipt Date: 20081002
  Transmission Date: 20100525
  Serious: No
  Sender: FDA-Public Use
  Company Number: US-ASTRAZENECA-2008UW21309

PATIENT
  Age: 65 Year
  Sex: Female

DRUGS (4)
  1. ARIMIDEX [Suspect]
     Route: 048
     Dates: start: 20080501
  2. ARMOUR THYROID [Concomitant]
     Dates: start: 20010101
  3. SPIRONOLACTONE [Concomitant]
     Dates: start: 20030101
  4. METOPROLOL [Concomitant]
     Dates: start: 20030101

REACTIONS (4)
  - BONE PAIN [None]
  - HAIR TEXTURE ABNORMAL [None]
  - HOT FLUSH [None]
  - ONYCHOCLASIS [None]
